FAERS Safety Report 18185797 (Version 2)
Quarter: 2020Q4

REPORT INFORMATION
  Report Type: Spontaneous
  Country: US (occurrence: US)
  Receive Date: 20200824
  Receipt Date: 20201120
  Transmission Date: 20210113
  Serious: No
  Sender: FDA-Public Use
  Company Number: US-LUPIN PHARMACEUTICALS INC.-2020-04597

PATIENT
  Age: 56 Year
  Sex: Female
  Weight: 111.11 kg

DRUGS (2)
  1. METFORMIN HYDROCHLORIDE EXTENDED RELEASE TABLET USP, 1000 MG [Suspect]
     Active Substance: METFORMIN HYDROCHLORIDE
     Indication: DIABETES MELLITUS
     Dosage: 1000 MILLIGRAM, QD
     Route: 048
     Dates: start: 20191017, end: 20200729
  2. METFORMIN HYDROCHLORIDE EXTENDED RELEASE TABLET USP, 1000 MG [Suspect]
     Active Substance: METFORMIN HYDROCHLORIDE
     Dosage: 1000 MILLIGRAM, QD
     Route: 048
     Dates: start: 20200327, end: 20200729

REACTIONS (2)
  - No adverse event [Unknown]
  - Recalled product administered [Unknown]

NARRATIVE: CASE EVENT DATE: 20191017
